FAERS Safety Report 10498211 (Version 2)
Quarter: 2014Q4

REPORT INFORMATION
  Report Type: Report from Study
  Country: PL (occurrence: PL)
  Receive Date: 20141006
  Receipt Date: 20141010
  Transmission Date: 20150528
  Serious: Yes (Hospitalization)
  Sender: FDA-Public Use
  Company Number: PL-ASTRAZENECA-2014SE74169

PATIENT
  Age: 24587 Day
  Sex: Female

DRUGS (11)
  1. AZD6140 [Suspect]
     Active Substance: TICAGRELOR
     Indication: CORONARY ARTERY DISEASE
     Dosage: MODIFIED STUDY TREATMENT IN COMBINATION WITH CLOPIDOGREL/PLACEBO
     Route: 048
     Dates: start: 20130729, end: 20130903
  2. PLACEBO [Suspect]
     Active Substance: UNSPECIFIED INGREDIENT
     Indication: ACUTE CORONARY SYNDROME
     Route: 048
     Dates: start: 20130924, end: 20140915
  3. METOPROLOL TARTRATE. [Concomitant]
     Active Substance: METOPROLOL TARTRATE
     Indication: MYOCARDIAL ISCHAEMIA
     Route: 048
  4. GENSULIN M30 [Concomitant]
     Indication: DIABETES MELLITUS
     Route: 058
  5. ASA [Concomitant]
     Active Substance: ASPIRIN
     Route: 048
  6. ANESTELOC [Concomitant]
     Active Substance: PANTOPRAZOLE SODIUM
     Indication: PROPHYLAXIS
     Route: 048
  7. AZD6140 [Suspect]
     Active Substance: TICAGRELOR
     Indication: CORONARY ARTERY DISEASE
     Route: 048
     Dates: start: 20110803, end: 20130502
  8. PLACEBO [Suspect]
     Active Substance: UNSPECIFIED INGREDIENT
     Indication: ACUTE CORONARY SYNDROME
     Route: 048
     Dates: start: 20130729, end: 20130903
  9. METFORMAX [Concomitant]
     Active Substance: METFORMIN HYDROCHLORIDE
     Indication: DIABETES MELLITUS
     Route: 048
  10. AMLOPIN [Concomitant]
     Active Substance: AMLODIPINE BESYLATE
     Indication: HYPERTENSION
     Route: 048
  11. AZD6140 [Suspect]
     Active Substance: TICAGRELOR
     Indication: CORONARY ARTERY DISEASE
     Dosage: MODIFIED STUDY TREATMENT IN COMBINATION WITH CLOPIDOGREL/PLACEBO
     Route: 048
     Dates: start: 20130924, end: 20140915

REACTIONS (1)
  - Post procedural fistula [Recovered/Resolved]

NARRATIVE: CASE EVENT DATE: 20140719
